FAERS Safety Report 7111342-3 (Version None)
Quarter: 2010Q4

REPORT INFORMATION
  Report Type: 
  Country: None (occurrence: None)
  Receive Date: 20101118
  Receipt Date: 20101108
  Transmission Date: 20110411
  Serious: Yes (Hospitalization, Other)
  Sender: FDA-Public Use
  Company Number: PHHY2010CA74161

PATIENT
  Sex: Female

DRUGS (2)
  1. SANDOSTATIN LAR [Suspect]
     Indication: PITUITARY TUMOUR BENIGN
     Dosage: 20 MG, QMO
     Route: 030
     Dates: start: 20020122
  2. GLUCOBAY [Concomitant]

REACTIONS (10)
  - BILIARY DILATATION [None]
  - CHOLECYSTECTOMY [None]
  - EPIGASTRIC DISCOMFORT [None]
  - GALLBLADDER DISORDER [None]
  - HEPATIC CYST [None]
  - LIPASE INCREASED [None]
  - PANCREATITIS [None]
  - PERIPANCREATIC FLUID COLLECTION [None]
  - PLEURAL EFFUSION [None]
  - RENAL CYST [None]
